FAERS Safety Report 24133988 (Version 1)
Quarter: 2024Q3

REPORT INFORMATION
  Report Type: Spontaneous
  Country: GB (occurrence: GB)
  Receive Date: 20240724
  Receipt Date: 20240724
  Transmission Date: 20241017
  Serious: No
  Sender: GLAXOSMITHKLINE
  Company Number: GB-GSK-GB2024EME091366

PATIENT

DRUGS (1)
  1. SOTROVIMAB [Suspect]
     Active Substance: SOTROVIMAB
     Indication: Immune system disorder
     Dosage: 500 MG 500MGS / 8MLS
     Route: 042
     Dates: end: 20240718

REACTIONS (3)
  - Oedema [Recovered/Resolved]
  - Catheter site extravasation [Recovered/Resolved]
  - Incorrect dose administered [Recovered/Resolved]

NARRATIVE: CASE EVENT DATE: 20240718
